APPROVED DRUG PRODUCT: CARISOPRODOL, ASPIRIN AND CODEINE PHOSPHATE
Active Ingredient: ASPIRIN; CARISOPRODOL; CODEINE PHOSPHATE
Strength: 325MG;200MG;16MG
Dosage Form/Route: TABLET;ORAL
Application: A040860 | Product #001
Applicant: INGENUS PHARMACEUTICALS NJ LLC
Approved: Jan 7, 2010 | RLD: No | RS: No | Type: DISCN